FAERS Safety Report 7577346-1 (Version None)
Quarter: 2011Q2

REPORT INFORMATION
  Report Type: 
  Country: None (occurrence: None)
  Receive Date: 20110628
  Receipt Date: 20110112
  Transmission Date: 20111010
  Serious: Yes (Hospitalization, Other)
  Sender: FDA-Public Use
  Company Number: US-BAYER-201037450NA

PATIENT
  Age: 37 Year
  Sex: Female
  Weight: 74.83 kg

DRUGS (20)
  1. YAZ [Suspect]
     Indication: HORMONE LEVEL ABNORMAL
     Dosage: UNK
     Route: 048
     Dates: start: 20061205, end: 20080521
  2. SYNTHROID [Concomitant]
     Indication: HYPOTHYROIDISM
     Dosage: 112 MG, QD
     Route: 048
  3. HYDROCODONE BITARTRATE AND ACETAMINOPHEN [Concomitant]
     Indication: ABDOMINAL PAIN
     Route: 048
  4. DROSPIRENONE AND ETHINYL ESTRADIOL [Suspect]
     Indication: CONTRACEPTION
  5. TIZANIDINE HCL [Concomitant]
     Dosage: 4 MG, PRN
     Route: 048
     Dates: start: 20090821
  6. DROSPIRENONE AND ETHINYL ESTRADIOL [Suspect]
     Indication: HORMONE LEVEL ABNORMAL
     Dosage: UNK
     Route: 048
     Dates: start: 20080711, end: 20100126
  7. METFORMIN HCL [Concomitant]
     Indication: DIABETES MELLITUS
     Dosage: 1000 MG, QD
     Dates: start: 20090821
  8. MULTI-VITAMIN [Concomitant]
     Dosage: UNK
     Route: 048
  9. MELATONIN [Concomitant]
     Dosage: UNK
     Route: 048
     Dates: start: 20080425
  10. WELLBUTRIN [Concomitant]
     Dosage: 150 MG, UNK
  11. ASCORBIC ACID [Concomitant]
  12. IBUPROFEN [Concomitant]
  13. BUPROPION HCL [Concomitant]
     Indication: MOOD ALTERED
     Dosage: 150 MG, BID
  14. YAZ [Suspect]
     Indication: CONTRACEPTION
  15. VICODIN [Concomitant]
     Indication: PAIN
     Dosage: 350 MG, PRN
     Dates: start: 20080401
  16. B-COMPLEX [VITAMIN B NOS] [Concomitant]
     Dosage: UNK
     Route: 048
     Dates: start: 20080425
  17. LUNESTA [Concomitant]
     Dosage: UNK UNK, PRN
     Route: 048
     Dates: start: 20090821
  18. METFORMIN HCL [Concomitant]
     Indication: INSULIN RESISTANT DIABETES
  19. BUPROPION HYDROCHLORIDE [Concomitant]
     Dosage: 150 MG, BID
  20. KLONOPIN [Concomitant]
     Dosage: 1 MG, UNK
     Route: 048
     Dates: start: 20070208

REACTIONS (10)
  - DYSPNOEA [None]
  - EMOTIONAL DISTRESS [None]
  - CHOLECYSTITIS CHRONIC [None]
  - ABDOMINAL PAIN UPPER [None]
  - NAUSEA [None]
  - SCAR [None]
  - INJURY [None]
  - DECREASED APPETITE [None]
  - PAIN [None]
  - GALLBLADDER INJURY [None]
